FAERS Safety Report 8955552 (Version 1)
Quarter: 2012Q4

REPORT INFORMATION
  Report Type: 
  Country: CA (occurrence: CA)
  Receive Date: 20121210
  Receipt Date: 20121210
  Transmission Date: 20130627
  Serious: Yes (Other)
  Sender: FDA-Public Use
  Company Number: CA-PAR PHARMACEUTICAL, INC-2012SCPR004748

PATIENT

DRUGS (4)
  1. DOXYCYCLINE [Suspect]
     Indication: Q FEVER
     Dosage: UNK, Unknown
     Route: 065
  2. ALCOHOL [Suspect]
     Indication: PRODUCT USED FOR UNKNOWN INDICATION
     Dosage: 55 g, / day
     Route: 065
  3. TADALAFIL [Concomitant]
     Indication: PRODUCT USED FOR UNKNOWN INDICATION
     Dosage: UNK, Unknown
     Route: 065
  4. BENZODIAZEPINE DERIVATIVES [Concomitant]
     Indication: PRODUCT USED FOR UNKNOWN INDICATION
     Dosage: UNK, Unknown
     Route: 065

REACTIONS (2)
  - Venoocclusive liver disease [Recovering/Resolving]
  - Portal hypertensive gastropathy [Recovering/Resolving]
